FAERS Safety Report 4664204-5 (Version None)
Quarter: 2005Q2

REPORT INFORMATION
  Report Type: 
  Country: None (occurrence: None)
  Receive Date: 20050516
  Receipt Date: 20050516
  Transmission Date: 20051028
  Serious: Yes (Hospitalization)
  Sender: FDA-Public Use
  Company Number: None

PATIENT
  Age: 69 Year
  Sex: Male
  Weight: 87.5 kg

DRUGS (5)
  1. ASPIRIN [Suspect]
     Indication: PROPHYLAXIS
     Dosage: 81 MG
     Dates: start: 20040701, end: 20050301
  2. ASPIRIN [Suspect]
     Indication: TRANSIENT ISCHAEMIC ATTACK
     Dosage: 81 MG
     Dates: start: 20040701, end: 20050301
  3. TERAZOSIN HCL [Concomitant]
  4. GLYBURIDE [Concomitant]
  5. CYANOCOBALAMIN [Concomitant]

REACTIONS (1)
  - HAEMORRHAGE [None]
